FAERS Safety Report 4878376-0 (Version None)
Quarter: 2005Q4

REPORT INFORMATION
  Report Type: 
  Country: None (occurrence: None)
  Receive Date: 20051206
  Receipt Date: 20050908
  Transmission Date: 20060501
  Serious: No
  Sender: FDA-Public Use
  Company Number: USA0509107293

PATIENT
  Age: 57 Year
  Sex: Male

DRUGS (2)
  1. CYMBALTA [Suspect]
     Indication: DIABETIC NEUROPATHY
     Dosage: 150 MG AS NEEDED
  2. DRUG FOR PARKINSON'S DISEASE [Concomitant]

REACTIONS (1)
  - PRESCRIBED OVERDOSE [None]
